FAERS Safety Report 5475522-5 (Version None)
Quarter: 2007Q3

REPORT INFORMATION
  Report Type: 
  Country: None (occurrence: None)
  Receive Date: 20070905
  Receipt Date: 20060804
  Transmission Date: 20080115
  Serious: Yes (Life-Threatening, Hospitalization, Other)
  Sender: FDA-Public Use
  Company Number: WAES 0608USA01378

PATIENT
  Age: 59 Year
  Sex: Female
  Weight: 82.5547 kg

DRUGS (4)
  1. MAXALT [Suspect]
     Indication: MIGRAINE
     Dosage: 10 MG/1X/PO
     Route: 048
     Dates: start: 20060725, end: 20060725
  2. DIOVAN [Concomitant]
  3. NORVASC [Concomitant]
  4. (THERAPY UNSPECIFIED) [Concomitant]

REACTIONS (1)
  - ACUTE MYOCARDIAL INFARCTION [None]
